FAERS Safety Report 18356855 (Version 1)
Quarter: 2020Q4

REPORT INFORMATION
  Report Type: Spontaneous
  Country: IN (occurrence: IN)
  Receive Date: 20201007
  Receipt Date: 20201007
  Transmission Date: 20210114
  Serious: Yes (Other)
  Sender: FDA-Public Use
  Company Number: IN-ABBVIE-20K-078-3598673-00

PATIENT
  Sex: Female

DRUGS (1)
  1. IMBRUVICA [Suspect]
     Active Substance: IBRUTINIB
     Indication: CHRONIC LYMPHOCYTIC LEUKAEMIA
     Dosage: 3*140 MG PER DAY
     Route: 065
     Dates: start: 202003

REACTIONS (2)
  - Spinal fracture [Unknown]
  - Chronic lymphocytic leukaemia [Unknown]
